FAERS Safety Report 12876003 (Version 3)
Quarter: 2019Q1

REPORT INFORMATION
  Report Type: Spontaneous
  Country: US (occurrence: US)
  Receive Date: 20161024
  Receipt Date: 20190307
  Transmission Date: 20190417
  Serious: No
  Sender: FDA-Public Use
  Company Number: US-JAZZ-2016-US-015272

PATIENT
  Sex: Female

DRUGS (31)
  1. XYREM [Suspect]
     Active Substance: SODIUM OXYBATE
     Dosage: DOSE ADJUSTMENTS
     Route: 048
     Dates: start: 201206, end: 201401
  2. XYREM [Suspect]
     Active Substance: SODIUM OXYBATE
     Dosage: DOSE ADJUSTMENTS
     Route: 048
     Dates: start: 201512, end: 201512
  3. XYREM [Suspect]
     Active Substance: SODIUM OXYBATE
     Dosage: 4.5 G, BID
     Route: 048
     Dates: start: 201512
  4. ALBUTEROL HFA [Concomitant]
     Active Substance: ALBUTEROL SULFATE
  5. LAMICTAL [Concomitant]
     Active Substance: LAMOTRIGINE
  6. ZOCOR [Concomitant]
     Active Substance: SIMVASTATIN
  7. XYREM [Suspect]
     Active Substance: SODIUM OXYBATE
     Indication: NARCOLEPSY
     Dosage: 4 G, BID
     Route: 048
     Dates: start: 200712, end: 201206
  8. NICOTROL [Concomitant]
     Active Substance: NICOTINE
  9. MIRENA [Concomitant]
     Active Substance: LEVONORGESTREL
  10. CONCERTA [Concomitant]
     Active Substance: METHYLPHENIDATE HYDROCHLORIDE
  11. IBUPROFEN. [Concomitant]
     Active Substance: IBUPROFEN
  12. PREVACID [Concomitant]
     Active Substance: LANSOPRAZOLE
  13. METOCLOPRAMIDE HYDROCHLORIDE. [Concomitant]
     Active Substance: METOCLOPRAMIDE HYDROCHLORIDE
  14. XYREM [Suspect]
     Active Substance: SODIUM OXYBATE
     Dosage: 2.25 G, BID
     Route: 048
     Dates: start: 201512, end: 201512
  15. SALBUTAMOL [Concomitant]
     Active Substance: ALBUTEROL
  16. CHANTIX [Concomitant]
     Active Substance: VARENICLINE TARTRATE
  17. XYREM [Suspect]
     Active Substance: SODIUM OXYBATE
     Dosage: 4.5 G, BID
     Route: 048
     Dates: start: 201401, end: 2015
  18. ABILIFY [Concomitant]
     Active Substance: ARIPIPRAZOLE
  19. ADVAIR HFA [Concomitant]
     Active Substance: FLUTICASONE PROPIONATE\SALMETEROL XINAFOATE
  20. PROAIR HFA [Concomitant]
     Active Substance: ALBUTEROL SULFATE
  21. ADDERALL [Concomitant]
     Active Substance: AMPHETAMINE ASPARTATE\AMPHETAMINE SULFATE\DEXTROAMPHETAMINE SACCHARATE\DEXTROAMPHETAMINE SULFATE
  22. COLACE [Concomitant]
     Active Substance: DOCUSATE SODIUM
  23. DIOVAN [Concomitant]
     Active Substance: VALSARTAN
  24. MIRAPEX [Concomitant]
     Active Substance: PRAMIPEXOLE DIHYDROCHLORIDE
  25. LATUDA [Concomitant]
     Active Substance: LURASIDONE HYDROCHLORIDE
  26. TRIAZOLAM. [Concomitant]
     Active Substance: TRIAZOLAM
  27. SINGULAIR [Concomitant]
     Active Substance: MONTELUKAST SODIUM
  28. DESIPRAMINE [Concomitant]
     Active Substance: DESIPRAMINE
  29. RANITIDINE HYDROCHLORIDE. [Concomitant]
     Active Substance: RANITIDINE HYDROCHLORIDE
  30. REMERON [Concomitant]
     Active Substance: MIRTAZAPINE
  31. VENLAFAXINE HCL [Concomitant]
     Active Substance: VENLAFAXINE HYDROCHLORIDE

REACTIONS (4)
  - Anxiety [Recovering/Resolving]
  - Victim of abuse [Unknown]
  - Pre-existing condition improved [Unknown]
  - Therapeutic response unexpected [Unknown]
